FAERS Safety Report 24466650 (Version 1)
Quarter: 2024Q4

REPORT INFORMATION
  Report Type: Spontaneous
  Country: FR (occurrence: FR)
  Receive Date: 20241018
  Receipt Date: 20241018
  Transmission Date: 20250114
  Serious: Yes (Hospitalization, Other)
  Sender: MYLAN
  Company Number: FR-STRAGNORDP-2024000653

PATIENT
  Age: 69 Year
  Sex: Female

DRUGS (2)
  1. VORICONAZOLE [Suspect]
     Active Substance: VORICONAZOLE
     Indication: Aspergillus infection
     Dosage: UNK
     Route: 042
  2. VORICONAZOLE [Suspect]
     Active Substance: VORICONAZOLE
     Indication: Aspergillus infection
     Dosage: 600 MILLIGRAM, QD (300 MG TWICE A DAY FOR 3 DAYS)
     Route: 048

REACTIONS (4)
  - Hepatic cytolysis [Unknown]
  - Atrial fibrillation [Unknown]
  - Respiratory distress [Unknown]
  - Overdose [Unknown]
